FAERS Safety Report 8488714-8 (Version None)
Quarter: 2012Q3

REPORT INFORMATION
  Report Type: 
  Country: None (occurrence: None)
  Receive Date: 20120705
  Receipt Date: 20120704
  Transmission Date: 20120928
  Serious: Yes (Hospitalization, Other)
  Sender: FDA-Public Use
  Company Number: AU-ROCHE-1072670

PATIENT
  Sex: Female

DRUGS (14)
  1. COPEGUS [Suspect]
     Dosage: 2 TAB AT AM AND 1 TAB AT PM
     Route: 048
     Dates: start: 20120423, end: 20120426
  2. MERSYNDOL [Concomitant]
     Indication: MUSCLE SPASMS
     Route: 048
  3. GENTAMICIN [Concomitant]
     Indication: SINUSITIS
     Dosage: 800 MG /2ML
     Dates: start: 20120311, end: 20120316
  4. ATROVENT [Concomitant]
     Indication: SINUSITIS
     Dosage: 500 UG IN 1 ML
     Dates: start: 20120311, end: 20120316
  5. VENTOLIN [Concomitant]
     Indication: SINUSITIS
     Dates: start: 20120311, end: 20120317
  6. PEGASYS [Suspect]
     Indication: HEPATITIS C
     Dosage: 0.5 ML OVER A WEEK
     Route: 058
     Dates: start: 20120329
  7. TRIMETHOPRIM [Concomitant]
     Dates: start: 20120515
  8. PEGASYS [Suspect]
     Dosage: 0.5 ML OVER A WEEK
     Route: 058
     Dates: start: 20120423
  9. COPEGUS [Suspect]
     Indication: HEPATITIS C
     Route: 048
     Dates: start: 20120326
  10. TMC435 (NS3/4A PROTEASE INHIBITOR) [Suspect]
     Route: 048
     Dates: start: 20120423
  11. TOPAMAX [Concomitant]
     Indication: MIGRAINE
     Route: 048
  12. TMC435 (NS3/4A PROTEASE INHIBITOR) [Suspect]
     Indication: HEPATITIS C
     Route: 048
     Dates: start: 20120326
  13. ACETAMINOPHEN [Concomitant]
     Indication: HEADACHE
     Route: 048
     Dates: start: 20120302
  14. TRIMETHOPRIM [Concomitant]
     Indication: URINARY TRACT INFECTION
     Route: 048
     Dates: start: 20120412, end: 20120418

REACTIONS (2)
  - ANAEMIA [None]
  - PANCYTOPENIA [None]
